FAERS Safety Report 21219208 (Version 1)
Quarter: 2022Q3

REPORT INFORMATION
  Report Type: Report from Study
  Country: US (occurrence: US)
  Receive Date: 20220816
  Receipt Date: 20220816
  Transmission Date: 20221027
  Serious: Yes (Other)
  Sender: FDA-Public Use
  Company Number: US-BRISTOL-MYERS SQUIBB COMPANY-2022-054406

PATIENT
  Age: 74 Year
  Sex: Male
  Weight: 104.33 kg

DRUGS (10)
  1. POMALYST [Suspect]
     Active Substance: POMALIDOMIDE
     Indication: Plasma cell myeloma
     Dosage: 21 OF 28 DAYS
     Route: 048
     Dates: start: 20220520
  2. POMALYST [Suspect]
     Active Substance: POMALIDOMIDE
     Indication: Prostate cancer
     Dosage: FOR 21 DAYS, 7 DAYS OFF, 28 DAY CYCLE
     Route: 048
     Dates: start: 20220522
  3. POMALYST [Suspect]
     Active Substance: POMALIDOMIDE
     Indication: Bence Jones proteinuria
  4. ELIQUIS [Suspect]
     Active Substance: APIXABAN
     Indication: Product used for unknown indication
     Route: 065
  5. DEXAMETHASONE [Concomitant]
     Active Substance: DEXAMETHASONE
     Indication: Product used for unknown indication
     Route: 065
  6. CHOLESTYRAMINE [Concomitant]
     Active Substance: CHOLESTYRAMINE
     Indication: Product used for unknown indication
     Route: 065
  7. TRULICITY [Concomitant]
     Active Substance: DULAGLUTIDE
     Indication: Product used for unknown indication
     Route: 065
  8. METFORMIN [Concomitant]
     Active Substance: METFORMIN HYDROCHLORIDE
     Indication: Product used for unknown indication
     Route: 065
  9. LISINOPRIL [Concomitant]
     Active Substance: LISINOPRIL
     Indication: Product used for unknown indication
     Route: 065
  10. GLIPIZIDE [Concomitant]
     Active Substance: GLIPIZIDE
     Indication: Product used for unknown indication
     Route: 065

REACTIONS (2)
  - Diarrhoea [Unknown]
  - Urinary tract infection [Unknown]
